FAERS Safety Report 5885530-8 (Version None)
Quarter: 2008Q3

REPORT INFORMATION
  Report Type: 
  Country: None (occurrence: None)
  Receive Date: 20080915
  Receipt Date: 20080915
  Transmission Date: 20090109
  Serious: No
  Sender: FDA-Public Use
  Company Number: None

PATIENT

DRUGS (2)
  1. DOBUTAMINE HCL [Suspect]
     Dosage: INJECTABLE 4,000 MCG/ML
  2. DOBUTAMINE [Suspect]
     Dosage: INJECTABLE 2,000 MCG/ML

REACTIONS (2)
  - INTERCEPTED DRUG DISPENSING ERROR [None]
  - MEDICATION ERROR [None]
